FAERS Safety Report 4823424-7 (Version None)
Quarter: 2005Q4

REPORT INFORMATION
  Report Type: 
  Country: None (occurrence: None)
  Receive Date: 20051108
  Receipt Date: 20051108
  Transmission Date: 20060501
  Serious: Yes (Other)
  Sender: FDA-Public Use
  Company Number: None

PATIENT
  Age: 88 Year
  Sex: Female
  Weight: 75.2971 kg

DRUGS (3)
  1. CYMBALTA [Suspect]
     Indication: ANXIETY
     Dosage: 30 MG QD PO
     Route: 048
  2. CYMBALTA [Suspect]
     Indication: DEPRESSION
     Dosage: 30 MG QD PO
     Route: 048
  3. CYMBALTA [Suspect]
     Indication: NEUROPATHY
     Dosage: 30 MG QD PO
     Route: 048

REACTIONS (2)
  - DISSOCIATION [None]
  - NEURALGIA [None]
